FAERS Safety Report 23576341 (Version 1)
Quarter: 2024Q1

REPORT INFORMATION
  Report Type: Spontaneous
  Country: US (occurrence: US)
  Receive Date: 20240228
  Receipt Date: 20240228
  Transmission Date: 20240410
  Serious: Yes (Other)
  Sender: FDA-Public Use
  Company Number: US-PFIZER INC-202400049510

PATIENT
  Age: 67 Year
  Sex: Female

DRUGS (1)
  1. HALCION [Suspect]
     Active Substance: TRIAZOLAM
     Dosage: SMALL DOSE

REACTIONS (2)
  - Drug abuse [Unknown]
  - Stevens-Johnson syndrome [Unknown]
